FAERS Safety Report 9542191 (Version 1)
Quarter: 2013Q3

REPORT INFORMATION
  Report Type: Spontaneous
  Country: US (occurrence: None)
  Receive Date: 20130918
  Receipt Date: 20130918
  Transmission Date: 20140515
  Serious: No
  Sender: FDA-Public Use
  Company Number: 2013CT000045

PATIENT
  Sex: Female

DRUGS (1)
  1. KORLYM [Suspect]
     Dates: end: 20130522

REACTIONS (3)
  - Blood pressure abnormal [None]
  - Nausea [None]
  - Malaise [None]
